FAERS Safety Report 10409051 (Version 1)
Quarter: 2014Q3

REPORT INFORMATION
  Report Type: Spontaneous
  Country: CH (occurrence: None)
  Receive Date: 20140822
  Receipt Date: 20140822
  Transmission Date: 20150326
  Serious: Yes (Hospitalization)
  Sender: FDA-Public Use
  Company Number: 20140511

PATIENT
  Age: 27 Year
  Sex: Female

DRUGS (1)
  1. VENOFER [Suspect]
     Active Substance: IRON SUCROSE
     Indication: ANAEMIA
     Dosage: 3 AMPOULES PER COURSE
     Route: 041
     Dates: start: 20140711, end: 20140713

REACTIONS (1)
  - Thrombophlebitis superficial [None]

NARRATIVE: CASE EVENT DATE: 20140713
